FAERS Safety Report 7472471-8 (Version None)
Quarter: 2011Q2

REPORT INFORMATION
  Report Type: 
  Country: None (occurrence: None)
  Receive Date: 20110511
  Receipt Date: 20110427
  Transmission Date: 20111010
  Serious: Yes (Hospitalization, Other)
  Sender: FDA-Public Use
  Company Number: PHHY2011FR30086

PATIENT
  Sex: Male
  Weight: 65 kg

DRUGS (6)
  1. POTASSIUM BICARBONATE [Concomitant]
     Indication: STOMATITIS
  2. SOLU-MEDROL [Concomitant]
     Dosage: 60 MG, UNK
  3. AFINITOR [Suspect]
     Dosage: 10 MG, DAILY
     Route: 048
     Dates: start: 20110307, end: 20110331
  4. XYLOCAINE [Concomitant]
  5. AFINITOR [Suspect]
     Dosage: 10 MG, DAILY
     Route: 048
     Dates: start: 20110407
  6. FENTANYL [Concomitant]
     Indication: PAIN
     Dosage: 100 MG, DAILY

REACTIONS (3)
  - PAIN [None]
  - NEOPLASM MALIGNANT [None]
  - PYREXIA [None]
